FAERS Safety Report 4342949-4 (Version None)
Quarter: 2004Q1

REPORT INFORMATION
  Report Type: 
  Country: None (occurrence: None)
  Receive Date: 20040325
  Receipt Date: 20031217
  Transmission Date: 20041129
  Serious: No
  Sender: FDA-Public Use
  Company Number: USA021123750

PATIENT
  Age: 64 Year
  Sex: Female
  Weight: 61 kg

DRUGS (2)
  1. EVISTA [Suspect]
     Indication: OSTEOPOROSIS
     Dosage: 60 MG/DAY
     Dates: start: 20010101, end: 20021106
  2. FORTEO [Suspect]
     Indication: OSTEOPOROSIS
     Dates: start: 20031201, end: 20031201

REACTIONS (9)
  - ABDOMINAL PAIN UPPER [None]
  - HOT FLUSH [None]
  - ILL-DEFINED DISORDER [None]
  - PHOTOPSIA [None]
  - PRESBYOPIA [None]
  - VISION BLURRED [None]
  - VISUAL ACUITY REDUCED [None]
  - VISUAL DISTURBANCE [None]
  - VITREOUS FLOATERS [None]
